FAERS Safety Report 13396119 (Version 2)
Quarter: 2017Q2

REPORT INFORMATION
  Report Type: Spontaneous
  Country: US (occurrence: US)
  Receive Date: 20170403
  Receipt Date: 20170531
  Transmission Date: 20170830
  Serious: No
  Sender: FDA-Public Use
  Company Number: US-GLAXOSMITHKLINE-US2017045911

PATIENT
  Sex: Female
  Weight: 71.2 kg

DRUGS (3)
  1. LISINOPRIL. [Suspect]
     Active Substance: LISINOPRIL
     Indication: HYPERTENSION
     Dosage: 10 MG, 1D
  2. ARNUITY ELLIPTA [Suspect]
     Active Substance: FLUTICASONE FUROATE
     Indication: ASTHMA
     Dosage: UNK
     Dates: start: 20160408, end: 20161001
  3. FLONASE [Concomitant]
     Active Substance: FLUTICASONE PROPIONATE

REACTIONS (6)
  - Dry mouth [Unknown]
  - Hypertension [Unknown]
  - Tooth deposit [Recovered/Resolved]
  - Secretion discharge [Unknown]
  - Wrong technique in product usage process [Unknown]
  - Cough [Unknown]

NARRATIVE: CASE EVENT DATE: 2016
